FAERS Safety Report 11420556 (Version 2)
Quarter: 2015Q4

REPORT INFORMATION
  Report Type: Spontaneous
  Country: CA (occurrence: CA)
  Receive Date: 20150826
  Receipt Date: 20151009
  Transmission Date: 20160304
  Serious: Yes (Other)
  Sender: FDA-Public Use
  Company Number: CA-PURDUE PHARMA-CAN-2015-0006013

PATIENT
  Age: 84 Year
  Sex: Female
  Weight: 47.62 kg

DRUGS (1)
  1. BUTRANS [Suspect]
     Active Substance: BUPRENORPHINE
     Indication: PAIN
     Dosage: 5 MCG, Q1H
     Route: 062

REACTIONS (6)
  - Fall [Unknown]
  - Drug ineffective [Unknown]
  - Delirium [Unknown]
  - Pain [Unknown]
  - Hallucination [Unknown]
  - Dizziness [Unknown]
